FAERS Safety Report 10174323 (Version 1)
Quarter: 2014Q2

REPORT INFORMATION
  Report Type: Spontaneous
  Country: TR (occurrence: TR)
  Receive Date: 20140515
  Receipt Date: 20140515
  Transmission Date: 20141212
  Serious: Yes (Hospitalization, Other)
  Sender: FDA-Public Use
  Company Number: TR-ACTAVIS-2014-10087

PATIENT
  Age: 22 Year
  Sex: Female

DRUGS (1)
  1. PROPYLTHIOURACIL (AELLC) [Suspect]
     Indication: BASEDOW^S DISEASE
     Dosage: 50 MG, TID
     Route: 065

REACTIONS (3)
  - Angioedema [Unknown]
  - Rash macular [Unknown]
  - Maternal exposure during pregnancy [Recovered/Resolved]
